FAERS Safety Report 19204320 (Version 1)
Quarter: 2021Q2

REPORT INFORMATION
  Report Type: Other
  Country: IL (occurrence: IL)
  Receive Date: 20210503
  Receipt Date: 20210503
  Transmission Date: 20210717
  Serious: Yes (Death, Other)
  Sender: FDA-Public Use
  Company Number: IL-ROCHE-2822054

PATIENT

DRUGS (2)
  1. FLUOROURACIL 5 FU [Suspect]
     Active Substance: FLUOROURACIL
     Indication: RECTAL CANCER
     Dosage: CONTINUOUS INFUSION 120 HOURS DURING THE FIRST AND FIFTH WEEKS OF RADIOTHERAPY
     Route: 042
  2. CAPECITABINE. [Suspect]
     Active Substance: CAPECITABINE
     Indication: RECTAL CANCER
     Route: 065

REACTIONS (8)
  - Neutropenia [Unknown]
  - Diarrhoea [Fatal]
  - Vomiting [Unknown]
  - Thrombocytopenia [Fatal]
  - Abdominal pain [Unknown]
  - Rectal tenesmus [Unknown]
  - Febrile neutropenia [Fatal]
  - Mucosal inflammation [Fatal]
